FAERS Safety Report 25490968 (Version 1)
Quarter: 2025Q2

REPORT INFORMATION
  Report Type: Spontaneous
  Country: US (occurrence: US)
  Receive Date: 20250629
  Receipt Date: 20250629
  Transmission Date: 20250716
  Serious: No
  Sender: SANOFI AVENTIS
  Company Number: US-SANOFI-02569651

PATIENT
  Age: 64 Year
  Sex: Male

DRUGS (2)
  1. DUPIXENT [Suspect]
     Active Substance: DUPILUMAB
     Indication: Eosinophilic oesophagitis
     Dosage: 300 MG, QW
  2. EOHILIA [Concomitant]
     Active Substance: BUDESONIDE

REACTIONS (4)
  - Rash [Unknown]
  - Skin warm [Unknown]
  - Skin swelling [Unknown]
  - Injection site reaction [Unknown]
